FAERS Safety Report 13990713 (Version 1)
Quarter: 2017Q3

REPORT INFORMATION
  Report Type: Spontaneous
  Country: PL (occurrence: PL)
  Receive Date: 20170920
  Receipt Date: 20170920
  Transmission Date: 20171128
  Serious: Yes (Other)
  Sender: FDA-Public Use
  Company Number: PL-ACCORD-058818

PATIENT
  Age: 59 Year
  Sex: Female
  Weight: 73 kg

DRUGS (3)
  1. GEMCITABINE ACCORD [Suspect]
     Active Substance: GEMCITABINE HYDROCHLORIDE
     Indication: OVARIAN CANCER
     Dosage: THERAPY ONGOING DAY REPORT (23-JAN-2017 )
     Route: 042
     Dates: start: 20170102
  2. ONDANSETRON ACCORD [Suspect]
     Active Substance: ONDANSETRON
     Indication: OVARIAN CANCER
     Dosage: STRENGTH: 2 MG/ML
     Route: 042
     Dates: start: 20170102, end: 20170102
  3. CARBOPLATIN ACCORD [Suspect]
     Active Substance: CARBOPLATIN
     Indication: OVARIAN CANCER
     Dosage: THERAPY ONGOING DAY REPORT (23-JAN-2017)
     Route: 042
     Dates: start: 20170102

REACTIONS (7)
  - Drug hypersensitivity [Recovered/Resolved]
  - Neutropenia [Recovering/Resolving]
  - Rash [Recovering/Resolving]
  - Off label use [Unknown]
  - Dyspnoea [Recovered/Resolved]
  - Erythema [Recovered/Resolved]
  - Anaemia [Recovering/Resolving]

NARRATIVE: CASE EVENT DATE: 20170102
